FAERS Safety Report 26170781 (Version 1)
Quarter: 2025Q4

REPORT INFORMATION
  Report Type: Spontaneous
  Country: CA (occurrence: CA)
  Receive Date: 20251217
  Receipt Date: 20251217
  Transmission Date: 20260118
  Serious: Yes (Death, Life-Threatening, Hospitalization, Disabling, Congenital Anomaly, Other)
  Sender: TAKEDA
  Company Number: CA-TAKEDA-2025TUS114061

PATIENT
  Age: 43 Year
  Sex: Female
  Weight: 97 kg

DRUGS (97)
  1. ENTYVIO [Suspect]
     Active Substance: VEDOLIZUMAB
     Indication: Product used for unknown indication
     Dosage: UNK
  2. METHOTREXATE [Suspect]
     Active Substance: METHOTREXATE
     Indication: Product used for unknown indication
     Dosage: 20.0 MILLIGRAM
  3. METHOTREXATE [Suspect]
     Active Substance: METHOTREXATE
     Dosage: 25.0 MILLIGRAM
  4. METHOTREXATE [Suspect]
     Active Substance: METHOTREXATE
     Dosage: 25.0 MILLIGRAM
  5. METHOTREXATE [Suspect]
     Active Substance: METHOTREXATE
     Dosage: 25.0 MILLIGRAM, QD
  6. METHOTREXATE [Suspect]
     Active Substance: METHOTREXATE
     Dosage: 15.0 MILLIGRAM
  7. METHOTREXATE [Suspect]
     Active Substance: METHOTREXATE
     Dosage: 20.0 MILLIGRAM
  8. METHOTREXATE [Suspect]
     Active Substance: METHOTREXATE
     Dosage: 20.0 MILLIGRAM
  9. METHOTREXATE [Suspect]
     Active Substance: METHOTREXATE
     Dosage: 25.0 MILLIGRAM
  10. METHOTREXATE [Suspect]
     Active Substance: METHOTREXATE
     Dosage: 25.0 MILLIGRAM
  11. METHOTREXATE [Suspect]
     Active Substance: METHOTREXATE
     Dosage: 25.0 MILLIGRAM, QD
  12. METHOTREXATE [Suspect]
     Active Substance: METHOTREXATE
     Dosage: 15.0 MILLIGRAM
  13. METHOTREXATE [Suspect]
     Active Substance: METHOTREXATE
     Dosage: 25.0 MILLIGRAM
  14. METHOTREXATE [Suspect]
     Active Substance: METHOTREXATE
     Dosage: 20 MILLIGRAM
  15. PREVACID [Suspect]
     Active Substance: LANSOPRAZOLE
     Indication: Product used for unknown indication
     Dosage: UNK
  16. RITUXIMAB [Suspect]
     Active Substance: RITUXIMAB
     Indication: Rheumatoid arthritis
     Dosage: UNK
  17. RITUXIMAB [Suspect]
     Active Substance: RITUXIMAB
     Dosage: UNK
  18. RITUXIMAB [Suspect]
     Active Substance: RITUXIMAB
     Dosage: 350 MILLIGRAM
  19. AIMOVIG [Suspect]
     Active Substance: ERENUMAB-AOOE
     Indication: Migraine
     Dosage: UNK
  20. CHLORHEXIDINE GLUCONATE [Suspect]
     Active Substance: CHLORHEXIDINE GLUCONATE
     Indication: Product used for unknown indication
     Dosage: UNK
  21. COSENTYX [Suspect]
     Active Substance: SECUKINUMAB
     Indication: Psoriatic arthropathy
     Dosage: UNK
  22. DICLOFENAC [Suspect]
     Active Substance: DICLOFENAC
     Indication: Product used for unknown indication
     Dosage: 50.0 MILLIGRAM
  23. DICLOFENAC POTASSIUM [Suspect]
     Active Substance: DICLOFENAC POTASSIUM
     Indication: Product used for unknown indication
     Dosage: UNK
  24. ERELZI [Suspect]
     Active Substance: ETANERCEPT-SZZS
     Indication: Rheumatoid arthritis
     Dosage: 50.0 MILLIGRAM
  25. HUMIRA [Suspect]
     Active Substance: ADALIMUMAB
     Indication: Rheumatoid arthritis
     Dosage: 4.0 MILLIGRAM
  26. HUMIRA [Suspect]
     Active Substance: ADALIMUMAB
     Dosage: 40.0 MILLIGRAM
  27. HYDROCORTISONE [Suspect]
     Active Substance: HYDROCORTISONE
     Indication: Product used for unknown indication
     Dosage: UNK
  28. HYDROCORTISONE ACETATE [Suspect]
     Active Substance: HYDROCORTISONE ACETATE
     Indication: Rheumatoid arthritis
     Dosage: UNK
  29. HYDROXYCHLOROQUINE [Suspect]
     Active Substance: HYDROXYCHLOROQUINE
     Indication: Product used for unknown indication
     Dosage: 400 MILLIGRAM, QD
  30. HYDROXYCHLOROQUINE [Suspect]
     Active Substance: HYDROXYCHLOROQUINE
     Dosage: 420 MILLIGRAM, QD
  31. HYDROXYCHLOROQUINE [Suspect]
     Active Substance: HYDROXYCHLOROQUINE
     Dosage: 40 MILLIGRAM
  32. HYRIMOZ [Suspect]
     Active Substance: ADALIMUMAB-ADAZ
     Indication: Rheumatoid arthritis
     Dosage: 40.0 MILLIGRAM, QD
  33. HYRIMOZ [Suspect]
     Active Substance: ADALIMUMAB-ADAZ
     Dosage: 40.0 MILLIGRAM
  34. INFLIXIMAB [Suspect]
     Active Substance: INFLIXIMAB
     Indication: Product used for unknown indication
     Dosage: UNK
  35. INOSITOL [Suspect]
     Active Substance: INOSITOL
     Indication: Product used for unknown indication
     Dosage: UNK
  36. ISOPROPYL ALCOHOL [Suspect]
     Active Substance: ISOPROPYL ALCOHOL
     Indication: Product used for unknown indication
     Dosage: UNK
  37. METHYLPREDNISOLONE SODIUM SUCCINATE [Suspect]
     Active Substance: METHYLPREDNISOLONE SODIUM SUCCINATE
     Indication: Product used for unknown indication
     Dosage: UNK
  38. NAPROXEN [Suspect]
     Active Substance: NAPROXEN
     Indication: Product used for unknown indication
     Dosage: UNK
  39. OXYCODONE [Suspect]
     Active Substance: OXYCODONE
     Indication: Product used for unknown indication
     Dosage: 25.0 MILLIGRAM, QD
  40. OXYCODONE HYDROCHLORIDE [Suspect]
     Active Substance: OXYCODONE HYDROCHLORIDE
     Indication: Product used for unknown indication
     Dosage: 25.0 MILLIGRAM
  41. OXYCODONE TEREPHTHALATE [Suspect]
     Active Substance: OXYCODONE TEREPHTHALATE
     Indication: Product used for unknown indication
     Dosage: UNK
  42. PERIOGARD [Suspect]
     Active Substance: CHLORHEXIDINE GLUCONATE
     Indication: Product used for unknown indication
     Dosage: UNK
  43. POTASSIUM ASPARTATE [Suspect]
     Active Substance: POTASSIUM ASPARTATE
     Indication: Product used for unknown indication
     Dosage: UNK
  44. CETIRIZINE HYDROCHLORIDE [Suspect]
     Active Substance: CETIRIZINE HYDROCHLORIDE
     Indication: Product used for unknown indication
     Dosage: 10.0 MILLIGRAM
  45. CETIRIZINE HYDROCHLORIDE [Suspect]
     Active Substance: CETIRIZINE HYDROCHLORIDE
     Dosage: UNK
  46. CETIRIZINE HYDROCHLORIDE [Suspect]
     Active Substance: CETIRIZINE HYDROCHLORIDE
     Dosage: 25.0 MILLIGRAM
  47. CETIRIZINE HYDROCHLORIDE\PSEUDOEPHEDRINE HYDROCHLORIDE [Suspect]
     Active Substance: CETIRIZINE HYDROCHLORIDE\PSEUDOEPHEDRINE HYDROCHLORIDE
     Indication: Rheumatoid arthritis
     Dosage: 10.0 MILLIGRAM
  48. CETIRIZINE HYDROCHLORIDE\PSEUDOEPHEDRINE HYDROCHLORIDE [Suspect]
     Active Substance: CETIRIZINE HYDROCHLORIDE\PSEUDOEPHEDRINE HYDROCHLORIDE
     Indication: Off label use
     Dosage: 10.0 MILLIGRAM
  49. DIETARY SUPPLEMENT\HERBALS [Suspect]
     Active Substance: DIETARY SUPPLEMENT\HERBALS
     Indication: Product used for unknown indication
     Dosage: UNK
  50. DICLOFENAC SODIUM [Suspect]
     Active Substance: DICLOFENAC SODIUM
     Indication: Product used for unknown indication
     Dosage: 50.0 MILLIGRAM
  51. DICLOFENAC SODIUM [Suspect]
     Active Substance: DICLOFENAC SODIUM
     Dosage: 50 MILLIGRAM
  52. LEFLUNOMIDE [Suspect]
     Active Substance: LEFLUNOMIDE
     Indication: Rheumatoid arthritis
     Dosage: 20.0 MILLIGRAM
  53. MYCOPHENOLATE MOFETIL [Suspect]
     Active Substance: MYCOPHENOLATE MOFETIL
     Indication: Product used for unknown indication
     Dosage: UNK
  54. ELEUTHERO\HERBALS [Suspect]
     Active Substance: ELEUTHERO\HERBALS
     Indication: Product used for unknown indication
     Dosage: UNK
  55. SIMPONI [Suspect]
     Active Substance: GOLIMUMAB
     Indication: Rheumatoid arthritis
     Dosage: 50.0 MILLIGRAM
  56. SIMPONI [Suspect]
     Active Substance: GOLIMUMAB
     Indication: Prostatic specific antigen
  57. GOLD SODIUM THIOMALATE [Suspect]
     Active Substance: GOLD SODIUM THIOMALATE
     Indication: Product used for unknown indication
     Dosage: UNK
  58. SULFAMETHOXAZOLE [Suspect]
     Active Substance: SULFAMETHOXAZOLE
     Indication: Product used for unknown indication
     Dosage: UNK
  59. SULFASALAZINE [Suspect]
     Active Substance: SULFASALAZINE
     Indication: Rheumatoid arthritis
     Dosage: 2.0 GRAM
  60. SULFASALAZINE [Suspect]
     Active Substance: SULFASALAZINE
     Dosage: 1.0 GRAM
  61. SULFASALAZINE [Suspect]
     Active Substance: SULFASALAZINE
     Dosage: 300 MILLIGRAM, QD
  62. SULFASALAZINE [Suspect]
     Active Substance: SULFASALAZINE
     Dosage: 200.0 MILLIGRAM, QD
  63. SULFASALAZINE [Suspect]
     Active Substance: SULFASALAZINE
     Dosage: 1000 MILLIGRAM
  64. SULFASALAZINE [Suspect]
     Active Substance: SULFASALAZINE
     Dosage: 2000 MILLIGRAM
  65. SULFATRIM [Suspect]
     Active Substance: SULFAMETHOXAZOLE\TRIMETHOPRIM
     Indication: Product used for unknown indication
     Dosage: UNK
  66. TOFACITINIB [Suspect]
     Active Substance: TOFACITINIB
     Indication: Product used for unknown indication
     Dosage: UNK
  67. TOFACITINIB CITRATE [Suspect]
     Active Substance: TOFACITINIB CITRATE
     Indication: Product used for unknown indication
     Dosage: UNK
  68. TOPIRAMATE [Suspect]
     Active Substance: TOPIRAMATE
     Indication: Product used for unknown indication
     Dosage: UNK
  69. TRAMADOL HYDROCHLORIDE AND ACETAMINOPHEN [Suspect]
     Active Substance: ACETAMINOPHEN\TRAMADOL HYDROCHLORIDE
     Indication: Product used for unknown indication
     Dosage: UNK
  70. TRIAMCINOLONE ACETONIDE [Suspect]
     Active Substance: TRIAMCINOLONE ACETONIDE
     Indication: Product used for unknown indication
     Dosage: UNK
  71. TUMS [Suspect]
     Active Substance: CALCIUM CARBONATE
     Indication: Product used for unknown indication
     Dosage: UNK
  72. USTEKINUMAB [Suspect]
     Active Substance: USTEKINUMAB
     Indication: Product used for unknown indication
     Dosage: UNK
  73. PREDNISONE [Suspect]
     Active Substance: PREDNISONE
     Indication: Product used for unknown indication
     Dosage: UNK
  74. XELJANZ [Suspect]
     Active Substance: TOFACITINIB CITRATE
     Indication: Rheumatoid arthritis
     Dosage: 10.0 MILLIGRAM
  75. XELJANZ [Suspect]
     Active Substance: TOFACITINIB CITRATE
     Dosage: 20.0 MILLIGRAM
  76. IBUPROFEN [Concomitant]
     Active Substance: IBUPROFEN
  77. LANSOPRAZOLE [Concomitant]
     Active Substance: LANSOPRAZOLE
     Dosage: UNK
  78. LISINOPRIL [Concomitant]
     Active Substance: LISINOPRIL
     Dosage: UNK
  79. LISINOPRIL [Concomitant]
     Active Substance: LISINOPRIL
     Dosage: UNK
  80. LORAZEPAM [Concomitant]
     Active Substance: LORAZEPAM
     Dosage: UNK
  81. MARVELON [Concomitant]
     Active Substance: DESOGESTREL\ETHINYL ESTRADIOL
     Dosage: UNK
  82. MORPHINE [Concomitant]
     Active Substance: MORPHINE
     Dosage: UNK
  83. NICOTINAMIDE [Concomitant]
     Active Substance: NIACINAMIDE
     Dosage: UNK
  84. PREDNISOLONE [Concomitant]
     Active Substance: PREDNISOLONE
     Dosage: UNK
  85. QUETIAPINE FUMARATE [Concomitant]
     Active Substance: QUETIAPINE FUMARATE
     Dosage: UNK
  86. RAMIPRIL [Concomitant]
     Active Substance: RAMIPRIL
     Dosage: UNK
  87. RISEDRONATE SODIUM [Concomitant]
     Active Substance: RISEDRONATE SODIUM
     Dosage: UNK
  88. SULFASALAZINE [Concomitant]
     Active Substance: SULFASALAZINE
     Dosage: UNK
  89. THIAMINE HYDROCHLORIDE [Concomitant]
     Active Substance: THIAMINE HYDROCHLORIDE
     Dosage: UNK
  90. TYLENOL [Concomitant]
     Active Substance: ACETAMINOPHEN
     Dosage: UNK
  91. VALINE [Concomitant]
     Active Substance: VALINE
     Dosage: UNK
  92. VITAMIN A [Concomitant]
     Active Substance: VITAMIN A
  93. VITAMIN D3 [Concomitant]
     Active Substance: CHOLECALCIFEROL
     Dosage: UNK
  94. ZESTRIL [Concomitant]
     Active Substance: LISINOPRIL
     Dosage: UNK
  95. ZOPICLONE [Concomitant]
     Active Substance: ZOPICLONE
     Dosage: UNK
  96. GLUCOSAMINE [Concomitant]
     Active Substance: GLUCOSAMINE
     Dosage: UNK
  97. ERGOCALCIFEROL [Concomitant]
     Active Substance: ERGOCALCIFEROL
     Dosage: UNK

REACTIONS (50)
  - Wound [Fatal]
  - Alopecia [Fatal]
  - Amnesia [Fatal]
  - Arthropathy [Fatal]
  - Back disorder [Fatal]
  - Breast cancer stage II [Fatal]
  - C-reactive protein abnormal [Fatal]
  - Chest pain [Fatal]
  - Condition aggravated [Fatal]
  - Contusion [Fatal]
  - Decreased appetite [Fatal]
  - Delirium [Fatal]
  - Discomfort [Fatal]
  - Dislocation of vertebra [Fatal]
  - Drug hypersensitivity [Fatal]
  - Adjustment disorder with depressed mood [Fatal]
  - Drug intolerance [Fatal]
  - Dyspepsia [Fatal]
  - Dyspnoea [Fatal]
  - Fluid retention [Fatal]
  - Gait inability [Fatal]
  - Glossodynia [Fatal]
  - Hand deformity [Fatal]
  - Hepatic enzyme increased [Fatal]
  - Infection [Fatal]
  - Infusion related reaction [Fatal]
  - Injury [Fatal]
  - Joint swelling [Fatal]
  - Lip dry [Fatal]
  - Liver disorder [Fatal]
  - Lower limb fracture [Fatal]
  - Lower respiratory tract infection [Fatal]
  - Malaise [Fatal]
  - Musculoskeletal pain [Fatal]
  - Nausea [Fatal]
  - Oedema [Fatal]
  - Pemphigus [Fatal]
  - Pulmonary fibrosis [Fatal]
  - Rheumatoid arthritis [Fatal]
  - Rheumatoid factor positive [Fatal]
  - Road traffic accident [Fatal]
  - Synovitis [Fatal]
  - Systemic lupus erythematosus [Fatal]
  - Arthralgia [Unknown]
  - Product use issue [Unknown]
  - Prescribed underdose [Unknown]
  - Off label use [Unknown]
  - Drug ineffective [Unknown]
  - Incorrect route of product administration [Unknown]
  - Prescribed overdose [Unknown]
